FAERS Safety Report 4305266-4 (Version None)
Quarter: 2004Q1

REPORT INFORMATION
  Report Type: 
  Country: None (occurrence: None)
  Receive Date: 20040226
  Receipt Date: 20020306
  Transmission Date: 20041129
  Serious: No
  Sender: FDA-Public Use
  Company Number: US-BRISTOL-MYERS SQUIBB COMPANY-11760584

PATIENT
  Age: 52 Year
  Sex: Female
  Weight: 63 kg

DRUGS (3)
  1. CARBOPLATIN [Suspect]
     Indication: OVARIAN CANCER
     Dates: start: 20010301, end: 20010701
  2. TAXOL [Suspect]
     Indication: OVARIAN CANCER
     Route: 042
     Dates: start: 20010301, end: 20010701
  3. GLUTAMINE [Concomitant]
     Indication: PAIN PROPHYLAXIS
     Dosage: FOR 3 DAYS AFTER EVERY TREATMENT

REACTIONS (2)
  - ALOPECIA AREATA [None]
  - ONYCHORRHEXIS [None]
